FAERS Safety Report 14577371 (Version 1)
Quarter: 2018Q1

REPORT INFORMATION
  Report Type: Spontaneous
  Country: US (occurrence: US)
  Receive Date: 20180226
  Receipt Date: 20180226
  Transmission Date: 20180509
  Serious: No
  Sender: FDA-Public Use
  Company Number: None

PATIENT
  Sex: Male

DRUGS (1)
  1. RIVASTIGMINE 4.5MG CAPSULES [Suspect]
     Active Substance: RIVASTIGMINE

REACTIONS (2)
  - Headache [None]
  - Fatigue [None]
